FAERS Safety Report 25376326 (Version 1)
Quarter: 2025Q2

REPORT INFORMATION
  Report Type: Report from Study
  Country: US (occurrence: US)
  Receive Date: 20250529
  Receipt Date: 20250529
  Transmission Date: 20250717
  Serious: Yes (Hospitalization)
  Sender: ABBVIE
  Company Number: US-ABBVIE-6043413

PATIENT
  Age: 71 Year
  Sex: Female

DRUGS (2)
  1. HUMIRA [Suspect]
     Active Substance: ADALIMUMAB
     Indication: Psoriatic arthropathy
     Route: 058
     Dates: start: 20241025
  2. PROLIA [Suspect]
     Active Substance: DENOSUMAB
     Indication: Osteoporosis
     Route: 058
     Dates: start: 20241206

REACTIONS (8)
  - Blood pressure decreased [Recovering/Resolving]
  - Dizziness [Recovered/Resolved]
  - Amnesia [Not Recovered/Not Resolved]
  - Arthralgia [Recovering/Resolving]
  - Balance disorder [Unknown]
  - Peripheral swelling [Recovering/Resolving]
  - Blood potassium decreased [Recovering/Resolving]
  - Dizziness [Unknown]

NARRATIVE: CASE EVENT DATE: 20241206
